FAERS Safety Report 8978001 (Version 1)
Quarter: 2012Q4

REPORT INFORMATION
  Report Type: 
  Country: GB (occurrence: GB)
  Receive Date: 20121219
  Receipt Date: 20121219
  Transmission Date: 20130627
  Serious: Yes (Other)
  Sender: FDA-Public Use
  Company Number: GB-MERCK-1212GBR006464

PATIENT
  Age: 54 Year
  Sex: Female

DRUGS (6)
  1. JANUVIA [Suspect]
     Indication: DIABETES MELLITUS
     Dosage: 100 mg, qd
     Route: 048
     Dates: start: 20121109, end: 20121121
  2. AMLODIPINE [Concomitant]
     Indication: HYPERTENSION
     Dosage: 5 mg, qd
     Route: 048
     Dates: start: 20120119
  3. ATORVASTATIN [Concomitant]
     Indication: HYPERLIPIDAEMIA
     Dosage: 10 mg, qd
     Route: 048
     Dates: start: 20111124
  4. LISINOPRIL [Concomitant]
     Indication: HYPERTENSION
     Dosage: 10 mg, qd
     Route: 048
     Dates: start: 20120119
  5. METFORMIN [Concomitant]
     Indication: DIABETES MELLITUS
     Dosage: 500 mg, tid
     Route: 048
     Dates: start: 20120119, end: 20121004
  6. NEBIVOLOL [Concomitant]
     Indication: HYPERTENSION
     Dosage: 5 mg, qd
     Route: 048
     Dates: start: 20120119

REACTIONS (2)
  - Vision blurred [Not Recovered/Not Resolved]
  - Visual impairment [Not Recovered/Not Resolved]
